FAERS Safety Report 10150024 (Version 3)
Quarter: 2014Q2

REPORT INFORMATION
  Report Type: Spontaneous
  Country: US (occurrence: US)
  Receive Date: 20140502
  Receipt Date: 20140527
  Transmission Date: 20141212
  Serious: Yes (Hospitalization)
  Sender: FDA-Public Use
  Company Number: US-DENDREON CORPORATION-2014PROUSA03684

PATIENT
  Age: 65 Year
  Sex: Male

DRUGS (1)
  1. PROVENGE [Suspect]
     Indication: PROSTATE CANCER METASTATIC
     Dosage: 250 ML, SINGLE
     Route: 042
     Dates: start: 20140414, end: 20140414

REACTIONS (7)
  - Blood pressure decreased [Unknown]
  - Pallor [Unknown]
  - Infection [Unknown]
  - Hypertension [Unknown]
  - Tremor [Unknown]
  - Cold sweat [Unknown]
  - Chills [Unknown]
